FAERS Safety Report 6125398-8 (Version None)
Quarter: 2009Q1

REPORT INFORMATION
  Report Type: 
  Country: None (occurrence: None)
  Receive Date: 20090319
  Receipt Date: 20090319
  Transmission Date: 20090719
  Serious: Yes (Hospitalization)
  Sender: FDA-Public Use
  Company Number: None

PATIENT
  Age: 73 Year
  Sex: Male

DRUGS (1)
  1. FENTANYL-25 [Suspect]
     Indication: ANAESTHESIA
     Dates: start: 20090217

REACTIONS (1)
  - APNOEA [None]
